FAERS Safety Report 9187334 (Version 1)
Quarter: 2013Q1

REPORT INFORMATION
  Report Type: Spontaneous
  Country: US (occurrence: US)
  Receive Date: 20130325
  Receipt Date: 20130325
  Transmission Date: 20140127
  Serious: Yes (Other)
  Sender: FDA-Public Use
  Company Number: US-JNJFOC-20130310117

PATIENT
  Sex: Male
  Weight: 108.86 kg

DRUGS (4)
  1. SANDOZ FENTANYL TRANSDERMAL SYSTEM [Suspect]
     Indication: CANCER PAIN
     Route: 062
     Dates: start: 2010
  2. AMBIEN [Concomitant]
     Indication: SLEEP DISORDER THERAPY
     Route: 048
  3. PERCOCET [Concomitant]
     Indication: BREAKTHROUGH PAIN
     Dosage: 10 MG/ 650 MG TABLET
     Route: 048
  4. XANAX [Concomitant]
     Indication: ANXIETY
     Dosage: 10 MG/ 650 MG TABLET
     Route: 048
     Dates: start: 2010

REACTIONS (2)
  - Adverse event [Unknown]
  - Treatment noncompliance [Unknown]
